FAERS Safety Report 6374184-2 (Version None)
Quarter: 2009Q3

REPORT INFORMATION
  Report Type: 
  Country: None (occurrence: None)
  Receive Date: 20090924
  Receipt Date: 20090618
  Transmission Date: 20100115
  Serious: No
  Sender: FDA-Public Use
  Company Number: US-ASTRAZENECA-2009UW15925

PATIENT
  Age: 544 Month
  Sex: Female

DRUGS (1)
  1. SEROQUEL XR [Suspect]
     Route: 048
     Dates: start: 20090401

REACTIONS (3)
  - ABNORMAL BEHAVIOUR [None]
  - INSOMNIA [None]
  - MOOD ALTERED [None]
